FAERS Safety Report 7134959-9 (Version None)
Quarter: 2010Q4

REPORT INFORMATION
  Report Type: 
  Country: None (occurrence: None)
  Receive Date: 20101203
  Receipt Date: 20101124
  Transmission Date: 20110411
  Serious: Yes (Death, Other)
  Sender: FDA-Public Use
  Company Number: JP-ACTELION-A-CH2010-42035

PATIENT
  Age: 75 Year
  Sex: Male

DRUGS (1)
  1. TRACLEER [Suspect]
     Indication: SKIN ULCER
     Dosage: UNK , UNK
     Route: 048
     Dates: start: 20080301

REACTIONS (4)
  - ILEUS PARALYTIC [None]
  - INTERSTITIAL LUNG DISEASE [None]
  - OEDEMA [None]
  - SUDDEN DEATH [None]
